FAERS Safety Report 18986624 (Version 2)
Quarter: 2021Q1

REPORT INFORMATION
  Report Type: Spontaneous
  Country: IN (occurrence: IN)
  Receive Date: 20210309
  Receipt Date: 20210312
  Transmission Date: 20210420
  Serious: Yes (Hospitalization)
  Sender: FDA-Public Use
  Company Number: IN-NOVOPROD-789978

PATIENT
  Age: 78 Year
  Sex: Male

DRUGS (1)
  1. MIXTARD 50 [Suspect]
     Active Substance: INSULIN HUMAN
     Indication: TYPE 2 DIABETES MELLITUS
     Dosage: UNK
     Route: 065

REACTIONS (4)
  - Urinary tract infection [Unknown]
  - Product quality issue [Unknown]
  - Drug ineffective [Unknown]
  - Blood glucose increased [Unknown]
